FAERS Safety Report 16381499 (Version 9)
Quarter: 2021Q4

REPORT INFORMATION
  Report Type: Report from Study
  Country: None (occurrence: JP)
  Receive Date: 20190603
  Receipt Date: 20211020
  Transmission Date: 20220303
  Serious: Yes (Hospitalization)
  Sender: FDA-Public Use
  Company Number: JP-ABBVIE-17K-087-2118193-00

PATIENT
  Age: 66 Year
  Sex: Female
  Weight: 47 kg

DRUGS (18)
  1. CARBIDOPA\LEVODOPA [Suspect]
     Active Substance: CARBIDOPA\LEVODOPA
     Indication: Parkinson^s disease
     Dosage: MD: 15 ML, CD: 2.3 ML/HR X 16 HR, ED: 1.0 ML/UNIT X 1
     Route: 050
     Dates: start: 20170620, end: 20170718
  2. CARBIDOPA\LEVODOPA [Suspect]
     Active Substance: CARBIDOPA\LEVODOPA
     Dosage: MD: 11 ML, CD: 2.1 ML/HR X 9 HR, ED: 0.5 ML/UNIT X 1
     Route: 050
     Dates: start: 20170621, end: 20170623
  3. CARBIDOPA\LEVODOPA [Suspect]
     Active Substance: CARBIDOPA\LEVODOPA
     Dosage: MD: 15 ML, CD: 2.3 ML/HR X 14 HR, ED: 1.0 ML/UNIT X 2
     Route: 050
     Dates: start: 20170804, end: 20171012
  4. CARBIDOPA\LEVODOPA [Suspect]
     Active Substance: CARBIDOPA\LEVODOPA
     Dosage: MD: 13.5 ML, CD: 2.3 ML/HR X 14 HRS, ED: 1 ML/UNIT X 2?DOSE DECREASED
     Route: 050
     Dates: start: 20171013
  5. ISTRADEFYLLINE [Concomitant]
     Active Substance: ISTRADEFYLLINE
     Indication: Parkinson^s disease
     Route: 048
     Dates: end: 20170718
  6. ISTRADEFYLLINE [Concomitant]
     Active Substance: ISTRADEFYLLINE
     Route: 048
  7. ROTIGOTINE [Concomitant]
     Active Substance: ROTIGOTINE
     Indication: Parkinson^s disease
     Route: 062
     Dates: end: 20170718
  8. DONEPEZIL HYDROCHLORIDE [Concomitant]
     Active Substance: DONEPEZIL HYDROCHLORIDE
     Indication: Product used for unknown indication
     Route: 048
     Dates: end: 20180322
  9. DONEPEZIL HYDROCHLORIDE [Concomitant]
     Active Substance: DONEPEZIL HYDROCHLORIDE
     Route: 048
     Dates: start: 20180323
  10. ALFACALCIDOL [Concomitant]
     Active Substance: ALFACALCIDOL
     Indication: Product used for unknown indication
     Route: 048
  11. FESOTERODINE FUMARATE [Concomitant]
     Active Substance: FESOTERODINE FUMARATE
     Indication: Product used for unknown indication
     Route: 048
  12. HERBALS [Concomitant]
     Active Substance: HERBALS
     Indication: Product used for unknown indication
     Route: 048
  13. HERBALS [Concomitant]
     Active Substance: HERBALS
     Route: 048
  14. SOLIFENACIN SUCCINATE [Concomitant]
     Active Substance: SOLIFENACIN SUCCINATE
     Indication: Product used for unknown indication
     Route: 048
  15. SOLIFENACIN SUCCINATE [Concomitant]
     Active Substance: SOLIFENACIN SUCCINATE
     Route: 048
  16. L-DOPA/DCI [Concomitant]
     Indication: Parkinson^s disease
     Route: 048
  17. TERIPARATIDE [Concomitant]
     Active Substance: TERIPARATIDE
     Indication: Product used for unknown indication
     Route: 058
     Dates: end: 20171207
  18. DENOSUMAB [Concomitant]
     Active Substance: DENOSUMAB
     Indication: Product used for unknown indication
     Route: 058
     Dates: start: 20180105, end: 20180105

REACTIONS (9)
  - Lumbar vertebral fracture [Recovering/Resolving]
  - Fractured sacrum [Recovering/Resolving]
  - Stoma site infection [Recovering/Resolving]
  - Stoma site inflammation [Recovering/Resolving]
  - Fall [Unknown]
  - Excessive granulation tissue [Unknown]
  - Stoma site erythema [Recovering/Resolving]
  - Stoma site pain [Recovered/Resolved]
  - Dyskinesia [Unknown]

NARRATIVE: CASE EVENT DATE: 20170710
